FAERS Safety Report 26096465 (Version 2)
Quarter: 2025Q4

REPORT INFORMATION
  Report Type: Spontaneous
  Country: EU (occurrence: EU)
  Receive Date: 20251127
  Receipt Date: 20251210
  Transmission Date: 20260118
  Serious: Yes (Other)
  Sender: RANBAXY
  Company Number: EU-SUN PHARMACEUTICAL INDUSTRIES LTD-2025R1-538043

PATIENT
  Age: 52 Year
  Sex: Male

DRUGS (3)
  1. DEFLAZACORT [Suspect]
     Active Substance: DEFLAZACORT
     Indication: Angioedema
     Dosage: 30 MILLIGRAM, EVERY 2 DAYS
     Route: 065
  2. BILASTINE [Concomitant]
     Active Substance: BILASTINE
     Indication: Antiallergic therapy
     Dosage: (2?/DAY)
     Route: 065
  3. BILASTINE [Concomitant]
     Active Substance: BILASTINE
     Dosage: UP TO 4?/DAY)
     Route: 065

REACTIONS (1)
  - Osteoporosis [Unknown]
